FAERS Safety Report 10252292 (Version 2)
Quarter: 2014Q2

REPORT INFORMATION
  Report Type: Spontaneous
  Country: US (occurrence: US)
  Receive Date: 20140623
  Receipt Date: 20140623
  Transmission Date: 20141212
  Serious: Yes (Other)
  Sender: FDA-Public Use
  Company Number: US-AMGEN-USASP2014039125

PATIENT
  Age: 52 Year
  Sex: Female
  Weight: 83.9 kg

DRUGS (2)
  1. ENBREL [Suspect]
     Indication: PSORIASIS
     Dosage: 50 MG, 2 TIMES/WK
     Route: 065
     Dates: start: 200910, end: 201307
  2. BENADRYL                           /00000402/ [Concomitant]
     Indication: PRURITUS
     Dosage: 25 MG, UNK
     Route: 048

REACTIONS (1)
  - Staphylococcal infection [Recovered/Resolved]
